FAERS Safety Report 12184484 (Version 2)
Quarter: 2016Q2

REPORT INFORMATION
  Report Type: Spontaneous
  Country: US (occurrence: US)
  Receive Date: 20160316
  Receipt Date: 20160426
  Transmission Date: 20160815
  Serious: Yes (Other)
  Sender: FDA-Public Use
  Company Number: US-PFIZER INC-2016158077

PATIENT
  Age: 66 Year
  Sex: Male
  Weight: 85.28 kg

DRUGS (1)
  1. CELEBREX [Suspect]
     Active Substance: CELECOXIB
     Indication: SPINAL COLUMN STENOSIS
     Dosage: 200 MG, 1X/DAY
     Dates: end: 2006

REACTIONS (6)
  - Loss of consciousness [Unknown]
  - Muscle spasticity [Unknown]
  - Arthropathy [Not Recovered/Not Resolved]
  - Accidental overdose [Unknown]
  - Musculoskeletal stiffness [Not Recovered/Not Resolved]
  - Biliary cirrhosis primary [Unknown]

NARRATIVE: CASE EVENT DATE: 2006
